FAERS Safety Report 25668110 (Version 1)
Quarter: 2025Q3

REPORT INFORMATION
  Report Type: Spontaneous
  Country: US (occurrence: US)
  Receive Date: 20250812
  Receipt Date: 20250812
  Transmission Date: 20251021
  Serious: No
  Sender: BOEHRINGER INGELHEIM
  Company Number: US-Komodo Health-a23aa000009ONpVAAW

PATIENT
  Sex: Male

DRUGS (1)
  1. STIOLTO RESPIMAT [Suspect]
     Active Substance: OLODATEROL HYDROCHLORIDE\TIOTROPIUM BROMIDE MONOHYDRATE
     Indication: Asthma
     Dosage: ONE PUFF TWICE A DAY, ONCE IN THE MORNING AND ONCE AT NIGHT. INHALATION SPRAY
     Dates: start: 2022

REACTIONS (1)
  - Intentional product use issue [Unknown]
